FAERS Safety Report 5375777-1 (Version None)
Quarter: 2007Q2

REPORT INFORMATION
  Report Type: 
  Country: None (occurrence: None)
  Receive Date: 20070628
  Receipt Date: 20070613
  Transmission Date: 20071010
  Serious: Yes (Other)
  Sender: FDA-Public Use
  Company Number: 2007AD000060

PATIENT
  Age: 46 Year
  Sex: Male

DRUGS (16)
  1. KEFLEX [Suspect]
     Indication: DRUG USE FOR UNKNOWN INDICATION
     Dates: end: 20040501
  2. ZINC [Suspect]
     Indication: PROMOTION OF WOUND HEALING
     Dosage: 50 MG; QID;
     Dates: start: 20040101, end: 20050101
  3. METHADONE HCL [Concomitant]
  4. HYDROCODONE BITARTRATE [Concomitant]
  5. DIAZEPAM [Concomitant]
  6. METHOCARBAMOL [Concomitant]
  7. FUROSEMIDE [Concomitant]
  8. DAILY MULTIVITAMIN [Concomitant]
  9. VITAMIN B12 NOS [Concomitant]
  10. CALCIUM CITRATE [Concomitant]
  11. VITAMIN A /00056002/ [Concomitant]
  12. VITAMIN C /0000801/ [Concomitant]
  13. ACETAMINOPHEN [Concomitant]
  14. ASPIRIN [Concomitant]
  15. HYDROCHLOROTHIAZIDE [Concomitant]
  16. METOPROLOL SUCCINATE [Concomitant]

REACTIONS (7)
  - ABDOMINAL ABSCESS [None]
  - ANAEMIA [None]
  - BLOOD THYROID STIMULATING HORMONE INCREASED [None]
  - COPPER DEFICIENCY [None]
  - DRUG TOXICITY [None]
  - FEBRILE NEUTROPENIA [None]
  - OPEN WOUND [None]
